FAERS Safety Report 5496912-0 (Version None)
Quarter: 2007Q4

REPORT INFORMATION
  Report Type: 
  Country: None (occurrence: None)
  Receive Date: 20071023
  Receipt Date: 20071012
  Transmission Date: 20080405
  Serious: Yes (Hospitalization)
  Sender: FDA-Public Use
  Company Number: 2007-165849-NL

PATIENT
  Age: 37 Year
  Sex: Female

DRUGS (5)
  1. MIRTAZAPINE [Suspect]
     Indication: DEPRESSION
     Dosage: DF
     Route: 048
  2. LITHIUM [Suspect]
     Indication: SUICIDE ATTEMPT
     Dosage: 24 G ONCE
     Route: 048
     Dates: start: 20070828
  3. TIANEPTINE [Suspect]
     Indication: DEPRESSION
     Dosage: 12.5 MG
     Route: 048
  4. FLUOXETINE HYDROCHLORIDE [Suspect]
     Indication: DEPRESSION
     Dosage: DF
     Route: 048
  5. VENLAFAXIINE HCL [Suspect]
     Indication: DEPRESSION
     Dosage: DF
     Route: 048

REACTIONS (6)
  - ABDOMINAL PAIN [None]
  - DIARRHOEA [None]
  - RASH [None]
  - SINUS TACHYCARDIA [None]
  - SUICIDE ATTEMPT [None]
  - VOMITING [None]
